FAERS Safety Report 20603474 (Version 1)
Quarter: 2022Q1

REPORT INFORMATION
  Report Type: Report from Study
  Country: FR (occurrence: FR)
  Receive Date: 20220316
  Receipt Date: 20220316
  Transmission Date: 20220423
  Serious: Yes (Hospitalization)
  Sender: FDA-Public Use
  Company Number: FR-PFIZER INC-202200381304

PATIENT
  Age: 57 Year
  Sex: Male
  Weight: 68 kg

DRUGS (7)
  1. CYTARABINE [Suspect]
     Active Substance: CYTARABINE
     Dosage: 40 MG
     Route: 042
     Dates: start: 20210623, end: 20210623
  2. METHOTREXATE [Suspect]
     Active Substance: METHOTREXATE
     Dosage: 2000 MG
     Route: 042
     Dates: start: 20210608, end: 20210608
  3. METHOTREXATE [Suspect]
     Active Substance: METHOTREXATE
     Dosage: 15 MG
     Route: 042
     Dates: start: 20210623, end: 20210623
  4. NILOTINIB [Suspect]
     Active Substance: NILOTINIB
     Indication: Philadelphia positive acute lymphocytic leukaemia
     Dosage: 400 MG
     Route: 048
     Dates: start: 20210608, end: 20210712
  5. CYTARABINE [Concomitant]
     Active Substance: CYTARABINE
     Dosage: 3000 MG
     Dates: start: 20210609, end: 20210610
  6. DEPO-MEDROL [Concomitant]
     Active Substance: METHYLPREDNISOLONE ACETATE
     Dosage: 40 MG
     Dates: start: 20210623, end: 20210623
  7. VALACYCLOVIR HYDROCHLORIDE [Concomitant]
     Active Substance: VALACYCLOVIR HYDROCHLORIDE
     Dosage: UNK
     Dates: start: 20210113, end: 20210705

REACTIONS (2)
  - Jugular vein thrombosis [Unknown]
  - Brachiocephalic vein thrombosis [Unknown]

NARRATIVE: CASE EVENT DATE: 20210705
